FAERS Safety Report 11472603 (Version 1)
Quarter: 2015Q3

REPORT INFORMATION
  Report Type: Report from Study
  Country: BR (occurrence: BR)
  Receive Date: 20150908
  Receipt Date: 20150908
  Transmission Date: 20151125
  Serious: Yes (Other)
  Sender: FDA-Public Use
  Company Number: PHHY2015BR107715

PATIENT
  Sex: Male
  Weight: 80 kg

DRUGS (2)
  1. DIOVAN [Suspect]
     Active Substance: VALSARTAN
     Dosage: 2 DF (160 MG), UNK
     Route: 065
  2. DIOVAN [Suspect]
     Active Substance: VALSARTAN
     Indication: CARDIAC DISORDER
     Dosage: 1 DF (320 MG) QD, IN THE MORNING
     Route: 065
     Dates: end: 20150630

REACTIONS (3)
  - Exercise test abnormal [Unknown]
  - Arterial occlusive disease [Unknown]
  - Product use issue [Unknown]
